FAERS Safety Report 4483422-2 (Version None)
Quarter: 2004Q4

REPORT INFORMATION
  Report Type: 
  Country: None (occurrence: None)
  Receive Date: 20041020
  Receipt Date: 20041005
  Transmission Date: 20050328
  Serious: Yes (Hospitalization)
  Sender: FDA-Public Use
  Company Number: USA041080016

PATIENT
  Age: 56 Year
  Sex: Male
  Weight: 132 kg

DRUGS (1)
  1. HUMULIN 70/30 [Suspect]
     Indication: DIABETES MELLITUS
     Dosage: 60 U/3 DAY

REACTIONS (9)
  - ABDOMINAL HAEMATOMA [None]
  - ARTHROPATHY [None]
  - FALL [None]
  - GLAUCOMA [None]
  - NEUROPATHY PERIPHERAL [None]
  - OBESITY [None]
  - RENAL DISORDER [None]
  - RIB FRACTURE [None]
  - SLEEP DISORDER [None]
